FAERS Safety Report 7637220-9 (Version None)
Quarter: 2011Q3

REPORT INFORMATION
  Report Type: 
  Country: None (occurrence: None)
  Receive Date: 20110726
  Receipt Date: 20110712
  Transmission Date: 20111222
  Serious: Yes (Hospitalization)
  Sender: FDA-Public Use
  Company Number: PHHY2011KR62584

PATIENT

DRUGS (9)
  1. ATACAND [Concomitant]
     Dosage: 8 MG, UNK
  2. CRESTOR [Concomitant]
     Dosage: 10 MG, UNK
  3. CLONAZEPAM [Concomitant]
     Dosage: 0.5 MG, UNK
  4. TEGRETOL [Suspect]
     Dosage: UNK UKN, UNK
  5. NEURONTIN [Concomitant]
     Dosage: 600 MG, UNK
  6. DILTELAN [Concomitant]
     Dosage: 180 MG, UNK
  7. ASIPRIN PROTECT [Concomitant]
     Dosage: 100 MG, UNK
  8. RENORMAL [Concomitant]
     Dosage: 160 MG, UNK
  9. TEPRENONE [Concomitant]
     Dosage: 50 MG, UNK

REACTIONS (3)
  - MUSCULOSKELETAL PAIN [None]
  - DYSPNOEA [None]
  - BRADYCARDIA [None]
